FAERS Safety Report 8270525-X (Version None)
Quarter: 2012Q2

REPORT INFORMATION
  Report Type: 
  Country: None (occurrence: None)
  Receive Date: 20120410
  Receipt Date: 20120402
  Transmission Date: 20120825
  Serious: Yes (Other)
  Sender: FDA-Public Use
  Company Number: US-BAYER-201040548NA

PATIENT
  Age: 34 Year
  Sex: Female

DRUGS (25)
  1. HYDROMORPHONE HCL [Concomitant]
     Dosage: 0.2 MG, UNK
     Dates: start: 20100804
  2. YASMIN [Suspect]
     Route: 048
     Dates: start: 20091201, end: 20100801
  3. PERCOCET [Concomitant]
     Dosage: 1-2 TABLET AS NEEDED
     Dates: start: 20100804
  4. DROSPIRENONE AND ETHINYL ESTRADIOL [Suspect]
     Route: 048
     Dates: start: 20091201, end: 20100801
  5. PREDNISONE TAB [Concomitant]
     Dosage: 20 MG, UNK
     Dates: start: 20100618
  6. DILAUDID [Concomitant]
     Dosage: 2 MG, UNK
     Dates: start: 20100705
  7. SCOPOLAMINE [Concomitant]
     Dosage: 1 PATCH
     Dates: start: 20100804
  8. LIDOCAINE [Concomitant]
     Dosage: 100 ML, UNK
     Dates: start: 20100804
  9. NEURONTIN [Concomitant]
     Dosage: 300-600MG ONE TO THREE TIMES A DAY
     Dates: end: 20100808
  10. YAZ [Suspect]
     Route: 048
     Dates: start: 20091201, end: 20100801
  11. HYDROCODONE BITARTRATE AND ACETAMINOPHEN [Concomitant]
     Dosage: 325-5 TO 325-10MG EVERY 4-6 HOURS AS NEEDED
     Dates: start: 20100705, end: 20100801
  12. TIZANIDINE HYDROCHLORIDE [Concomitant]
     Dosage: 2 MG, UNK
     Dates: end: 20100705
  13. LEXAPRO [Concomitant]
     Dosage: 10 MG, QD
     Dates: start: 20100301, end: 20100801
  14. NAPROXEN [Concomitant]
     Dosage: 375 MG, PRN
     Dates: start: 20090729, end: 20100701
  15. FEXOFENADINE [Concomitant]
     Dosage: 180 MG, UNK
     Dates: start: 20100618
  16. NORVASC [Concomitant]
     Dosage: 5-10 MG EVERY DAY
     Dates: end: 20100705
  17. HYDROCHLOROTHIAZIDE [Concomitant]
     Dosage: 25 MG, UNK
  18. CEPASTAT [Concomitant]
     Dosage: 1 LOZENGE
     Dates: start: 20100804
  19. DIOVAN HCT [Concomitant]
     Dosage: 80/12.5MG QD
     Dates: start: 20090418, end: 20100801
  20. ZOFRAN [Concomitant]
     Dosage: 4MG EVERY 6 HOURS AS NEEDED
     Dates: start: 20100705
  21. LORAZEPAM [Concomitant]
     Dosage: 1 MG, BID
     Dates: end: 20100801
  22. ANCEF [Concomitant]
     Dosage: 2 G, UNK
     Dates: start: 20100804
  23. DOCUSATE SODIUM [Concomitant]
     Dosage: 100 MG, BID
     Dates: start: 20100801
  24. FAMOTIDINE [Concomitant]
     Dosage: 20 MG, UNK
     Dates: start: 20100804
  25. VALIUM [Concomitant]
     Dosage: 5 MG, TID
     Dates: start: 20100805

REACTIONS (1)
  - DEEP VEIN THROMBOSIS [None]
